FAERS Safety Report 9934129 (Version 1)
Quarter: 2014Q1

REPORT INFORMATION
  Report Type: Report from Study
  Country: DE (occurrence: DE)
  Receive Date: 20140228
  Receipt Date: 20140228
  Transmission Date: 20141002
  Serious: Yes (Hospitalization)
  Sender: FDA-Public Use
  Company Number: DE-ROCHE-1003286

PATIENT
  Age: 58 Year
  Sex: Female
  Weight: 78 kg

DRUGS (3)
  1. RITUXIMAB [Suspect]
     Indication: RHEUMATOID ARTHRITIS
     Route: 042
     Dates: start: 20110504, end: 20110518
  2. LEFLUNOMIDE [Concomitant]
     Indication: RHEUMATOID ARTHRITIS
     Route: 048
     Dates: start: 2003, end: 20110609
  3. DICLOFENAC [Concomitant]
     Indication: RHEUMATOID ARTHRITIS
     Dosage: AS PER NEED
     Route: 048
     Dates: start: 2003

REACTIONS (1)
  - Carpal tunnel decompression [Recovered/Resolved]
